FAERS Safety Report 6930329-4 (Version None)
Quarter: 2010Q3

REPORT INFORMATION
  Report Type: 
  Country: None (occurrence: None)
  Receive Date: 20100818
  Receipt Date: 20100810
  Transmission Date: 20110219
  Serious: Yes (Hospitalization)
  Sender: FDA-Public Use
  Company Number: DE-ROCHE-718562

PATIENT
  Sex: Female
  Weight: 60 kg

DRUGS (3)
  1. PEGASYS [Suspect]
     Route: 058
     Dates: start: 20091101, end: 20100803
  2. COPEGUS [Suspect]
     Route: 048
     Dates: start: 20091101, end: 20100803
  3. PARACETAMOL [Concomitant]
     Route: 048
     Dates: start: 20091101

REACTIONS (6)
  - ALKALOSIS [None]
  - DIARRHOEA [None]
  - GENERAL PHYSICAL HEALTH DETERIORATION [None]
  - HELICOBACTER INFECTION [None]
  - HYPOCHLORAEMIA [None]
  - HYPONATRAEMIA [None]
